FAERS Safety Report 12546326 (Version 2)
Quarter: 2016Q3

REPORT INFORMATION
  Report Type: Report from Study
  Country: ZA (occurrence: ZA)
  Receive Date: 20160711
  Receipt Date: 20160718
  Transmission Date: 20161109
  Serious: Yes (Death, Other)
  Sender: FDA-Public Use
  Company Number: ZA-ASTELLAS-2016US017252

PATIENT
  Age: 85 Year
  Sex: Male

DRUGS (6)
  1. ENZALUTAMIDE [Suspect]
     Active Substance: ENZALUTAMIDE
     Indication: HORMONE-REFRACTORY PROSTATE CANCER
     Route: 048
     Dates: start: 20141220, end: 20160226
  2. VENLOR [Concomitant]
     Active Substance: VENLAFAXINE HYDROCHLORIDE
     Indication: PRODUCT USED FOR UNKNOWN INDICATION
     Route: 065
  3. ECOTRIN [Concomitant]
     Active Substance: ASPIRIN
     Indication: PRODUCT USED FOR UNKNOWN INDICATION
     Dosage: UNK I, ONCE DAILY
     Route: 065
  4. CARBILEV [Concomitant]
     Active Substance: CARBIDOPA\LEVODOPA
     Indication: PRODUCT USED FOR UNKNOWN INDICATION
     Dosage: 25/100 I, ONCE DAILY
     Route: 065
  5. SUPREFACT [Concomitant]
     Active Substance: BUSERELIN
     Indication: PRODUCT USED FOR UNKNOWN INDICATION
     Dosage: 9.95 MG, 3 MONTHLY
     Route: 065
  6. EPITEC [Concomitant]
     Indication: PRODUCT USED FOR UNKNOWN INDICATION
     Dosage: UNK I, ONCE DAILY
     Route: 065

REACTIONS (2)
  - Pancreatic carcinoma metastatic [Fatal]
  - Malignant neoplasm progression [Not Recovered/Not Resolved]

NARRATIVE: CASE EVENT DATE: 201605
